FAERS Safety Report 8985788 (Version 1)
Quarter: 2012Q4

REPORT INFORMATION
  Report Type: 
  Country: CA (occurrence: CA)
  Receive Date: 20121226
  Receipt Date: 20121226
  Transmission Date: 20130627
  Serious: Yes (Other)
  Sender: FDA-Public Use
  Company Number: PHHY2012CA119228

PATIENT
  Age: 48 Year
  Sex: Male

DRUGS (4)
  1. VINCRISTINE [Suspect]
     Indication: NON-HODGKIN^S LYMPHOMA
  2. DOXORUBICIN [Suspect]
     Indication: NON-HODGKIN^S LYMPHOMA
  3. PREDNISONE [Suspect]
     Indication: NON-HODGKIN^S LYMPHOMA
  4. CYCLOPHOSPHAMIDE [Suspect]
     Indication: NON-HODGKIN^S LYMPHOMA

REACTIONS (2)
  - Pneumatosis intestinalis [Recovering/Resolving]
  - Pneumoperitoneum [Recovering/Resolving]
